FAERS Safety Report 17201246 (Version 1)
Quarter: 2019Q4

REPORT INFORMATION
  Report Type: Spontaneous
  Country: US (occurrence: US)
  Receive Date: 20191203
  Receipt Date: 20191203
  Transmission Date: 20200122
  Serious: Yes (Hospitalization)
  Sender: FDA-Public Use
  Company Number: None

PATIENT
  Age: 7 Year
  Sex: Male

DRUGS (7)
  1. GENOTROPIN [Suspect]
     Active Substance: SOMATROPIN
     Indication: HYPOPITUITARISM
     Dosage: ?          OTHER FREQUENCY:AOT 2/0.2MG/D;?
     Route: 058
     Dates: start: 20180330
  2. LEVOTHYROXINE. [Concomitant]
     Active Substance: LEVOTHYROXINE
  3. PROMETHAZINE SYRUP [Concomitant]
  4. PREVACID [Concomitant]
     Active Substance: LANSOPRAZOLE
  5. FAMOTIDINE. [Concomitant]
     Active Substance: FAMOTIDINE
  6. SENNA SYRUP [Concomitant]
     Active Substance: SENNOSIDES
  7. GENOTROPIN [Suspect]
     Active Substance: SOMATROPIN
     Indication: HYPOPITUITARISM
     Dosage: ?          OTHER FREQUENCY:ALT W/0.4MG/D;?
     Route: 058
     Dates: start: 20180330

REACTIONS (2)
  - Therapy cessation [None]
  - Vascular device infection [None]

NARRATIVE: CASE EVENT DATE: 2019
